FAERS Safety Report 22040259 (Version 1)
Quarter: 2023Q1

REPORT INFORMATION
  Report Type: Spontaneous
  Country: US (occurrence: US)
  Receive Date: 20230227
  Receipt Date: 20230227
  Transmission Date: 20230418
  Serious: Yes (Death, Hospitalization, Other)
  Sender: FDA-Public Use
  Company Number: US-MLMSERVICE-20230213-4099290-1

PATIENT
  Age: 72 Year
  Sex: Female

DRUGS (1)
  1. HEPARIN SODIUM [Suspect]
     Active Substance: HEPARIN SODIUM
     Dosage: UNK

REACTIONS (5)
  - Septic shock [Fatal]
  - Skin wound [Fatal]
  - Heparin-induced thrombocytopenia [Unknown]
  - Skin necrosis [Unknown]
  - Purpura [Unknown]
